FAERS Safety Report 7845951-0 (Version None)
Quarter: 2011Q4

REPORT INFORMATION
  Report Type: 
  Country: None (occurrence: None)
  Receive Date: 20111025
  Receipt Date: 20111010
  Transmission Date: 20120403
  Serious: Yes (Other)
  Sender: FDA-Public Use
  Company Number: US-WATSON-2011-17286

PATIENT

DRUGS (2)
  1. VALPROATE SODIUM [Suspect]
     Indication: EPILEPSY
     Dosage: UNKNOWN
     Route: 064
  2. CARBAMAZEPINE [Suspect]
     Indication: EPILEPSY
     Dosage: UNKNOWN
     Route: 064

REACTIONS (5)
  - MOTOR DEVELOPMENTAL DELAY [None]
  - ATTENTION DEFICIT/HYPERACTIVITY DISORDER [None]
  - DISTURBANCE IN SOCIAL BEHAVIOUR [None]
  - PERSONALITY DISORDER [None]
  - MATERNAL EXPOSURE DURING PREGNANCY [None]
